FAERS Safety Report 4286030-1 (Version None)
Quarter: 2004Q1

REPORT INFORMATION
  Report Type: 
  Country: None (occurrence: None)
  Receive Date: 20040205
  Receipt Date: 20040126
  Transmission Date: 20041129
  Serious: Yes (Hospitalization, Other)
  Sender: FDA-Public Use
  Company Number: PHFR2004GB00792

PATIENT
  Age: 49 Year
  Sex: Female

DRUGS (7)
  1. NEORAL [Suspect]
     Indication: IMMUNOSUPPRESSION
     Route: 048
     Dates: start: 20031205
  2. ATORVASTATIN [Suspect]
     Indication: HYPERCHOLESTEROLAEMIA
     Dosage: 20-40 MG QD
     Route: 048
     Dates: start: 20031205, end: 20031225
  3. SIROLIMUS [Concomitant]
     Indication: IMMUNOSUPPRESSION
     Route: 048
     Dates: end: 20031208
  4. DIDRONEL PMO ^NORWICH EATON^ [Concomitant]
     Indication: OSTEOPOROSIS
     Dosage: 1 OT, QD
     Route: 048
  5. RANITIDINE [Concomitant]
     Dosage: 150 MG, BID
     Route: 048
  6. ELLESTE-DUET [Concomitant]
     Indication: HORMONE REPLACEMENT THERAPY
     Route: 048
     Dates: end: 20031204
  7. WARFARIN SODIUM [Concomitant]
     Indication: DEEP VEIN THROMBOSIS
     Dosage: UNK, UNK
     Route: 048
     Dates: end: 20031125

REACTIONS (9)
  - BLOOD CREATININE INCREASED [None]
  - DIALYSIS [None]
  - HAEMATOMA [None]
  - JAUNDICE [None]
  - NAUSEA [None]
  - RENAL IMPAIRMENT [None]
  - RHABDOMYOLYSIS [None]
  - STAPHYLOCOCCAL SEPSIS [None]
  - VOMITING [None]
